FAERS Safety Report 13628228 (Version 1)
Quarter: 2017Q2

REPORT INFORMATION
  Report Type: Spontaneous
  Country: US (occurrence: US)
  Receive Date: 20170531
  Receipt Date: 20170531
  Transmission Date: 20170830
  Serious: Yes (Other)
  Sender: FDA-Public Use
  Company Number: US-ASTELLAS-1813970

PATIENT
  Sex: Female

DRUGS (6)
  1. HYDROXYUREA. [Concomitant]
     Active Substance: HYDROXYUREA
  2. ASPIRIN. [Concomitant]
     Active Substance: ASPIRIN
     Route: 065
  3. LEVOTHYROXINE. [Concomitant]
     Active Substance: LEVOTHYROXINE
  4. TARCEVA [Suspect]
     Active Substance: ERLOTINIB HYDROCHLORIDE
     Indication: LUNG NEOPLASM MALIGNANT
     Route: 065
  5. METOPROLOL SUCCINATE. [Concomitant]
     Active Substance: METOPROLOL SUCCINATE
  6. TAGRISSO [Concomitant]
     Active Substance: OSIMERTINIB
     Route: 065
     Dates: start: 20160826

REACTIONS (6)
  - Productive cough [Not Recovered/Not Resolved]
  - Dry skin [Unknown]
  - Nail disorder [Unknown]
  - Diarrhoea [Unknown]
  - Hair disorder [Unknown]
  - Ill-defined disorder [Unknown]
